FAERS Safety Report 9989213 (Version 1)
Quarter: 2014Q1

REPORT INFORMATION
  Report Type: Spontaneous
  Country: US (occurrence: US)
  Receive Date: 20140310
  Receipt Date: 20140310
  Transmission Date: 20141002
  Serious: Yes (Hospitalization)
  Sender: FDA-Public Use
  Company Number: US-BAYER-2014-033904

PATIENT
  Age: 38 Year
  Sex: Female
  Weight: 56.69 kg

DRUGS (5)
  1. YASMIN [Suspect]
  2. OCELLA [Suspect]
     Indication: CONTRACEPTION
  3. ZYRTEC [Concomitant]
     Dosage: 10 MG, UNK
  4. TORADOL [Concomitant]
  5. PREDNISONE [Concomitant]

REACTIONS (1)
  - Pulmonary embolism [None]
